FAERS Safety Report 10547323 (Version 1)
Quarter: 2014Q4

REPORT INFORMATION
  Report Type: Spontaneous
  Country: CZ (occurrence: CZ)
  Receive Date: 20141028
  Receipt Date: 20141028
  Transmission Date: 20150529
  Serious: Yes (Other)
  Sender: FDA-Public Use
  Company Number: CZ-PFIZER INC-2014292117

PATIENT
  Age: 64 Year
  Sex: Female

DRUGS (2)
  1. SUNITINIB MALATE [Suspect]
     Active Substance: SUNITINIB MALATE
     Dosage: 37.5 MG, CYCLIC
  2. SUNITINIB MALATE [Suspect]
     Active Substance: SUNITINIB MALATE
     Indication: METASTATIC RENAL CELL CARCINOMA
     Dosage: 50 MG 2X/DAY, CYCLIC

REACTIONS (12)
  - Second primary malignancy [Unknown]
  - Hypothyroidism [Unknown]
  - Asthenia [Unknown]
  - Hypertension [Unknown]
  - Thrombocytopenia [Unknown]
  - Basal cell carcinoma [Unknown]
  - Dyspepsia [Unknown]
  - Atrial fibrillation [Unknown]
  - Neutropenia [Unknown]
  - Nausea [Unknown]
  - Eczema nummular [Unknown]
  - Periorbital oedema [Unknown]
